FAERS Safety Report 7314915-8 (Version None)
Quarter: 2011Q1

REPORT INFORMATION
  Report Type: 
  Country: None (occurrence: None)
  Receive Date: 20110225
  Receipt Date: 20100222
  Transmission Date: 20110831
  Serious: No
  Sender: FDA-Public Use
  Company Number: US-MYLANLABS-2010S1001660

PATIENT
  Age: 22 Year
  Sex: Female
  Weight: 65.77 kg

DRUGS (3)
  1. ORTHO TRI-CYCLEN [Concomitant]
     Route: 048
  2. AMNESTEEM [Suspect]
     Indication: ACNE
     Route: 048
     Dates: start: 20090928, end: 20100201
  3. AMNESTEEM [Suspect]
     Indication: ACNE CYSTIC
     Route: 048
     Dates: start: 20090928, end: 20100201

REACTIONS (4)
  - ANXIETY [None]
  - DEPRESSED MOOD [None]
  - FEELING ABNORMAL [None]
  - LOSS OF EMPLOYMENT [None]
